FAERS Safety Report 18837479 (Version 1)
Quarter: 2021Q1

REPORT INFORMATION
  Report Type: Spontaneous
  Country: IT (occurrence: IT)
  Receive Date: 20210203
  Receipt Date: 20210203
  Transmission Date: 20210419
  Serious: Yes (Congenital Anomaly, Other)
  Sender: FDA-Public Use
  Company Number: IT-SA-2021SA031552

PATIENT
  Age: 31 Year
  Sex: Female
  Weight: 74 kg

DRUGS (4)
  1. PROGEFFIK [Concomitant]
     Active Substance: PROGESTERONE
     Dosage: 200 MG
     Route: 048
     Dates: start: 20170801, end: 20171124
  2. INSULIN LISPRO [Suspect]
     Active Substance: INSULIN LISPRO
     Indication: DIABETES MELLITUS
     Dosage: 28 IU,QD
     Route: 058
     Dates: start: 20170908, end: 20171109
  3. LANTUS [Suspect]
     Active Substance: INSULIN GLARGINE
     Indication: DIABETES MELLITUS
     Dosage: 16 IU OD
     Route: 058
     Dates: start: 20170908, end: 20171109
  4. PREFOLIC [Concomitant]
     Active Substance: LEUCOVORIN CALCIUM
     Dosage: 15 MG
     Route: 048
     Dates: start: 20170801, end: 20171124

REACTIONS (1)
  - Kidney malformation [Unknown]

NARRATIVE: CASE EVENT DATE: 20171004
